FAERS Safety Report 5043814-X (Version None)
Quarter: 2006Q2

REPORT INFORMATION
  Report Type: 
  Country: None (occurrence: None)
  Receive Date: 20060629
  Receipt Date: 20060614
  Transmission Date: 20061013
  Serious: Yes (Hospitalization)
  Sender: FDA-Public Use
  Company Number: 2006RR-02077

PATIENT
  Age: 40 Year
  Sex: Female

DRUGS (3)
  1. AMITRIPTYLINE HCL [Suspect]
     Dosage: 150 MG, 100/DAY
  2. CLOMIPRAMINE HCL [Concomitant]
  3. FLUOXETINE [Concomitant]

REACTIONS (13)
  - ALCOHOL POISONING [None]
  - CONFUSIONAL STATE [None]
  - DRUG TOXICITY [None]
  - DRY SKIN [None]
  - ELECTROCARDIOGRAM QRS COMPLEX PROLONGED [None]
  - GRAND MAL CONVULSION [None]
  - INTENTIONAL OVERDOSE [None]
  - METABOLIC ACIDOSIS [None]
  - MYDRIASIS [None]
  - SINUS TACHYCARDIA [None]
  - SKIN WARM [None]
  - SOMNOLENCE [None]
  - VENTRICULAR TACHYCARDIA [None]
